FAERS Safety Report 21632599 (Version 2)
Quarter: 2023Q2

REPORT INFORMATION
  Report Type: Report from Study
  Country: US (occurrence: US)
  Receive Date: 20221123
  Receipt Date: 20230406
  Transmission Date: 20230722
  Serious: No
  Sender: FDA-Public Use
  Company Number: US-ABBVIE-22K-163-4535300-00

PATIENT
  Sex: Female

DRUGS (4)
  1. SKYRIZI [Suspect]
     Active Substance: RISANKIZUMAB-RZAA
     Indication: Psoriasis
     Dosage: WEEK 4.?STRENGTH:150 MG/ML
     Route: 058
     Dates: start: 20220602, end: 20220602
  2. SKYRIZI [Suspect]
     Active Substance: RISANKIZUMAB-RZAA
     Indication: Psoriatic arthropathy
     Dosage: WEEK 0.?STRENGTH:150 MG/ML
     Route: 058
     Dates: start: 2022, end: 2022
  3. SKYRIZI [Suspect]
     Active Substance: RISANKIZUMAB-RZAA
     Dosage: FIRST ADMINISTRATION DATE 2022.?EVERY 12 WEEKS THEREAFTER.?STRENGTH:150 MG/ML
     Route: 058
  4. SKYRIZI [Suspect]
     Active Substance: RISANKIZUMAB-RZAA
     Dosage: STRENGTH:150 MG/ML
     Route: 058
     Dates: end: 20221001

REACTIONS (3)
  - Off label use [Unknown]
  - Drug ineffective [Unknown]
  - Psoriatic arthropathy [Not Recovered/Not Resolved]

NARRATIVE: CASE EVENT DATE: 20220101
